FAERS Safety Report 25140769 (Version 1)
Quarter: 2025Q1

REPORT INFORMATION
  Report Type: Spontaneous
  Country: US (occurrence: None)
  Receive Date: 20250328
  Receipt Date: 20250328
  Transmission Date: 20250409
  Serious: No
  Sender: FDA-CTU
  Company Number: None

PATIENT
  Age: 47 Year
  Sex: Female

DRUGS (1)
  1. LAMOTRIGINE [Suspect]
     Active Substance: LAMOTRIGINE
     Indication: Bipolar disorder

REACTIONS (7)
  - Drug ineffective [None]
  - Dizziness [None]
  - Brain fog [None]
  - Cognitive disorder [None]
  - Fatigue [None]
  - Lethargy [None]
  - Product substitution issue [None]
